FAERS Safety Report 16190633 (Version 4)
Quarter: 2019Q2

REPORT INFORMATION
  Report Type: Spontaneous
  Country: US (occurrence: US)
  Receive Date: 20190412
  Receipt Date: 20190508
  Transmission Date: 20190711
  Serious: No
  Sender: FDA-Public Use
  Company Number: US-PFIZER INC-2019112992

PATIENT
  Age: 59 Year
  Sex: Male
  Weight: 83.1 kg

DRUGS (2)
  1. CHANTIX [Suspect]
     Active Substance: VARENICLINE TARTRATE
     Indication: VASCULAR GRAFT
     Dosage: UNK
     Route: 048
     Dates: start: 201902, end: 2019
  2. CHANTIX [Suspect]
     Active Substance: VARENICLINE TARTRATE
     Indication: SMOKING CESSATION THERAPY
     Dosage: 1 MG, 2X/DAY
     Route: 048
     Dates: start: 20190318

REACTIONS (1)
  - Drug ineffective [Unknown]
